FAERS Safety Report 4657979-2 (Version None)
Quarter: 2005Q2

REPORT INFORMATION
  Report Type: 
  Country: None (occurrence: None)
  Receive Date: 20050504
  Receipt Date: 20041029
  Transmission Date: 20051028
  Serious: Yes (Other)
  Sender: FDA-Public Use
  Company Number: PHEH2004US10744

PATIENT
  Age: 60 Year
  Sex: Female
  Weight: 76.6 kg

DRUGS (4)
  1. DIOVAN HCT [Suspect]
     Indication: HYPERTENSION
     Dosage: 1 DF QD ORAL
     Route: 048
     Dates: start: 20040526, end: 20040726
  2. WELLBUTRIN [Concomitant]
  3. ZYRTEC [Concomitant]
  4. ZOCOR [Concomitant]

REACTIONS (6)
  - BLISTER [None]
  - PAIN [None]
  - POLLAKIURIA [None]
  - RASH [None]
  - SCAR [None]
  - URINARY INCONTINENCE [None]
